FAERS Safety Report 15210809 (Version 1)
Quarter: 2018Q3

REPORT INFORMATION
  Report Type: Report from Study
  Country: FR (occurrence: FR)
  Receive Date: 20180728
  Receipt Date: 20180728
  Transmission Date: 20181010
  Serious: Yes (Death)
  Sender: FDA-Public Use
  Company Number: FR-SAKK-2018SA186835AA

PATIENT
  Age: 72 Year
  Sex: Male
  Weight: 173 kg

DRUGS (16)
  1. IRINOTECAN [Suspect]
     Active Substance: IRINOTECAN
     Dosage: 334 MG, QCY
     Route: 041
     Dates: start: 20150918, end: 20150918
  2. 5?FLUORACILO [Suspect]
     Active Substance: FLUOROURACIL
     Dosage: 745 MG, QCY
     Route: 040
     Dates: start: 20151229, end: 20151229
  3. IMODIUM [Concomitant]
     Active Substance: LOPERAMIDE HYDROCHLORIDE
     Dosage: UNK UNK, UNK
     Route: 065
     Dates: start: 20160102
  4. TIORFAN [Concomitant]
     Active Substance: RACECADOTRIL
     Dosage: UNK UNK, UNK
     Route: 065
     Dates: start: 20160102
  5. LOVENOX [Concomitant]
     Active Substance: ENOXAPARIN SODIUM
     Dosage: 4 ML, QD
     Route: 065
     Dates: start: 20160103
  6. FOLINIC ACID [Suspect]
     Active Substance: LEUCOVORIN
     Indication: COLORECTAL CANCER METASTATIC
     Dosage: 372 MG, QCY
     Route: 041
     Dates: start: 20151229, end: 20151229
  7. FOLINIC ACID [Suspect]
     Active Substance: LEUCOVORIN
     Dosage: 372 MG, QCY
     Route: 041
     Dates: start: 20150918, end: 20150918
  8. SMECTA [ALUMINIUM HYDROXIDE?MAGNESIUM CARBONATE GEL;ALUMINIUM MAGNESIU [Concomitant]
     Dosage: UNK UNK, UNK
     Route: 065
     Dates: start: 20160102
  9. AFLIBERCEPT [Suspect]
     Active Substance: AFLIBERCEPT
     Indication: COLORECTAL CANCER METASTATIC
     Dosage: 272 NG
     Route: 041
     Dates: start: 20151229, end: 20151229
  10. 5?FLUORACILO [Suspect]
     Active Substance: FLUOROURACIL
     Dosage: 4465 MG, QCY
     Route: 041
     Dates: start: 20150918, end: 20150918
  11. IRINOTECAN [Suspect]
     Active Substance: IRINOTECAN
     Indication: COLORECTAL CANCER METASTATIC
     Dosage: 334 MG, QCY
     Route: 041
     Dates: start: 20151229, end: 20151229
  12. 5?FLUORACILO [Suspect]
     Active Substance: FLUOROURACIL
     Dosage: 745 MG, QCY
     Route: 040
     Dates: start: 20150918, end: 20150918
  13. DUROGESIC [Concomitant]
     Active Substance: FENTANYL
     Dosage: UNK UNK, UNK
     Route: 065
     Dates: start: 20160102
  14. AFLIBERCEPT [Suspect]
     Active Substance: AFLIBERCEPT
     Dosage: 272 MG, QCY
     Route: 041
     Dates: start: 20150918, end: 20150918
  15. 5?FLUORACILO [Suspect]
     Active Substance: FLUOROURACIL
     Indication: COLORECTAL CANCER METASTATIC
     Dosage: 4465 MG, QCY
     Route: 041
     Dates: start: 20151229, end: 20151229
  16. OXYNORM [Concomitant]
     Active Substance: OXYCODONE HYDROCHLORIDE
     Dosage: 5 MG, QD
     Route: 065
     Dates: start: 20160103

REACTIONS (1)
  - Diarrhoea [Fatal]

NARRATIVE: CASE EVENT DATE: 20160102
